FAERS Safety Report 5938041-5 (Version None)
Quarter: 2008Q4

REPORT INFORMATION
  Report Type: 
  Country: None (occurrence: None)
  Receive Date: 20081031
  Receipt Date: 20081021
  Transmission Date: 20090506
  Serious: Yes (Death, Other)
  Sender: FDA-Public Use
  Company Number: PE-PFIZER INC-2008088508

PATIENT
  Sex: Female

DRUGS (6)
  1. ZOLOFT [Suspect]
     Indication: DEPRESSION
     Dosage: DAILY DOSE:100MG
     Dates: start: 20080701
  2. ESOMEPRAZOLE MAGNESIUM [Concomitant]
  3. LACTULOSE [Concomitant]
  4. TRAMADOL HCL [Concomitant]
  5. OXYCONTIN [Concomitant]
  6. VERAPAMIL [Concomitant]

REACTIONS (3)
  - COLON CANCER [None]
  - DEHYDRATION [None]
  - SYNCOPE [None]
